FAERS Safety Report 7543726-3 (Version None)
Quarter: 2011Q2

REPORT INFORMATION
  Report Type: 
  Country: None (occurrence: None)
  Receive Date: 20110613
  Receipt Date: 20040520
  Transmission Date: 20111010
  Serious: Yes (Hospitalization, Disabling)
  Sender: FDA-Public Use
  Company Number: PHHO2004JP06749

PATIENT
  Sex: Male
  Weight: 65 kg

DRUGS (3)
  1. DIOVAN [Suspect]
     Indication: HYPERTENSION
     Dosage: 80 MG DAILY
     Route: 048
     Dates: start: 20030620, end: 20031021
  2. TAMSULOSIN HCL [Concomitant]
     Indication: BENIGN PROSTATIC HYPERPLASIA
     Dates: start: 20030115, end: 20031021
  3. DIOVAN [Suspect]
     Dosage: NO TREATMENT
     Dates: start: 20030923

REACTIONS (3)
  - CEREBRAL INFARCTION [None]
  - HEMIPLEGIA [None]
  - DEPRESSED LEVEL OF CONSCIOUSNESS [None]
